FAERS Safety Report 7524678-9 (Version None)
Quarter: 2011Q2

REPORT INFORMATION
  Report Type: 
  Country: None (occurrence: None)
  Receive Date: 20110525
  Receipt Date: 20110512
  Transmission Date: 20111010
  Serious: Yes (Other)
  Sender: FDA-Public Use
  Company Number: 1000021001

PATIENT
  Age: 2 Hour
  Sex: Male

DRUGS (2)
  1. ESCITALOPRAM [Suspect]
     Dosage: 10 MG (10 MG, 1 IN 1 D), TRANSPLACENTAL; 5 MG (5 MG, 1 IN 1 D), TRANSPLACENTAL
     Route: 064
     Dates: end: 20110412
  2. ESCITALOPRAM [Suspect]
     Dosage: 10 MG (10 MG, 1 IN 1 D), TRANSPLACENTAL; 5 MG (5 MG, 1 IN 1 D), TRANSPLACENTAL
     Route: 064
     Dates: start: 20100701

REACTIONS (3)
  - DRUG WITHDRAWAL SYNDROME NEONATAL [None]
  - MATERNAL DRUGS AFFECTING FOETUS [None]
  - CRYING [None]
